FAERS Safety Report 4707494-2 (Version None)
Quarter: 2005Q3

REPORT INFORMATION
  Report Type: 
  Country: None (occurrence: None)
  Receive Date: 20050706
  Receipt Date: 20050701
  Transmission Date: 20060218
  Serious: Yes (Life-Threatening, Hospitalization, Other)
  Sender: FDA-Public Use
  Company Number: RU-GLAXOSMITHKLINE-B0386770A

PATIENT
  Age: 6 Year
  Sex: Male

DRUGS (3)
  1. LAMICTAL [Suspect]
     Indication: EPILEPSY
     Route: 048
     Dates: start: 20041101, end: 20041101
  2. VALPROATE SODIUM [Concomitant]
     Indication: EPILEPSY
  3. CLONAZEPAM [Concomitant]
     Indication: EPILEPSY

REACTIONS (2)
  - DERMATITIS ALLERGIC [None]
  - TOXIC EPIDERMAL NECROLYSIS [None]
